FAERS Safety Report 8958875 (Version 1)
Quarter: 2012Q4

REPORT INFORMATION
  Report Type: Report from Study
  Country: JP (occurrence: JP)
  Receive Date: 20121212
  Receipt Date: 20121212
  Transmission Date: 20130627
  Serious: Yes (Life-Threatening, Disabling)
  Sender: FDA-Public Use
  Company Number: JP-ASTELLAS-2011JP000726

PATIENT
  Age: 28 Year
  Sex: Female

DRUGS (63)
  1. TACROLIMUS CAPSULES [Suspect]
     Indication: LUPUS NEPHRITIS
     Dosage: 3 mg, Unknown/D
     Route: 048
     Dates: start: 20080815
  2. TACROLIMUS CAPSULES [Suspect]
     Dosage: 1 mg, Unknown/D
     Route: 048
     Dates: start: 20080508, end: 20080604
  3. TACROLIMUS CAPSULES [Suspect]
     Dosage: 2 mg, Unknown/D
     Route: 048
     Dates: start: 20080605, end: 20080814
  4. PREDNISOLONE [Suspect]
     Indication: LUPUS NEPHRITIS
     Dosage: 12 mg, Unknown/D
     Route: 048
     Dates: end: 20081009
  5. PREDNISOLONE [Suspect]
     Dosage: 11 mg, Unknown/D
     Route: 048
     Dates: start: 20081009, end: 20081105
  6. PREDNISOLONE [Suspect]
     Dosage: 12 mg, Unknown/D
     Route: 048
     Dates: start: 20081106, end: 20100630
  7. PREDNISOLONE [Suspect]
     Dosage: 15 mg, Unknown/D
     Route: 048
     Dates: start: 20100701, end: 20101103
  8. PREDNISOLONE [Suspect]
     Dosage: 30 mg, Unknown/D
     Route: 048
     Dates: start: 20101104, end: 20110126
  9. PREDNISOLONE [Suspect]
     Dosage: 25 mg, Unknown/D
     Route: 048
     Dates: start: 20110127, end: 20110209
  10. PREDNISOLONE [Suspect]
     Dosage: 22.5 mg, Unknown/D
     Route: 048
     Dates: start: 20110210, end: 20110223
  11. PREDNISOLONE [Suspect]
     Dosage: 20 mg, Unknown/D
     Route: 048
     Dates: start: 20110224, end: 20110309
  12. PREDNISOLONE [Suspect]
     Dosage: 17.5 mg, Unknown/D
     Route: 048
     Dates: start: 20110310, end: 20110323
  13. PREDNISOLONE [Suspect]
     Dosage: 15 mg, Unknown/D
     Route: 048
     Dates: start: 20110324, end: 20110601
  14. PREDNISOLONE [Suspect]
     Dosage: 14 mg, Unknown/D
     Route: 048
     Dates: start: 20110602, end: 20110727
  15. PREDNISOLONE [Suspect]
     Dosage: 13 mg, Unknown/D
     Route: 048
     Dates: start: 20110728, end: 20110824
  16. PREDNISOLONE [Suspect]
     Dosage: 12 mg, Unknown/D
     Route: 048
     Dates: start: 20110825, end: 20111101
  17. PREDNISOLONE [Suspect]
     Dosage: 20 mg, Unknown/D
     Route: 048
     Dates: start: 20111102, end: 20120313
  18. PREDNISOLONE [Suspect]
     Dosage: 17.5 mg, Unknown/D
     Route: 048
     Dates: start: 20120314, end: 20120424
  19. PREDNISOLONE [Suspect]
     Dosage: 15 mg, Unknown/D
     Route: 048
     Dates: start: 20120425
  20. MAGNESIUM OXIDE [Concomitant]
     Indication: CONSTIPATION
     Dosage: UNK
     Route: 048
     Dates: end: 20080618
  21. MAGNESIUM OXIDE [Concomitant]
     Indication: PROPHYLAXIS
     Dosage: 1.5 g, Unknown/D
     Route: 048
     Dates: start: 20101112, end: 20101226
  22. DAIKENTYUTO [Concomitant]
     Indication: CONSTIPATION
     Dosage: 7.5 g, Unknown/D
     Route: 048
     Dates: end: 20100505
  23. DAIKENTYUTO [Concomitant]
     Dosage: 7.5 g, Unknown/D
     Route: 048
     Dates: start: 20100823, end: 20110209
  24. DAIKENTYUTO [Concomitant]
     Dosage: 7.5 g, Unknown/D
     Route: 048
     Dates: start: 20110310, end: 20110506
  25. DAIKENTYUTO [Concomitant]
     Dosage: 7.5 g, Unknown/D
     Route: 048
     Dates: start: 20111117, end: 20120104
  26. ACINON [Concomitant]
     Indication: PROPHYLAXIS
     Dosage: 300 mg, Unknown/D
     Route: 048
     Dates: end: 20111124
  27. LIPITOR [Concomitant]
     Indication: HYPERLIPIDAEMIA
     Dosage: 5 mg, Unknown/D
     Route: 048
     Dates: end: 20111124
  28. LIPITOR [Concomitant]
     Dosage: 10 mg, Unknown/D
     Route: 048
     Dates: start: 20111125
  29. BONALON [Concomitant]
     Indication: PROPHYLAXIS
     Dosage: 35 mg, Weekly
     Route: 048
     Dates: start: 20081009
  30. SG [Concomitant]
     Indication: MIGRAINE
     Dosage: 1 g, Unknown/D
     Route: 048
     Dates: start: 20090507, end: 20091118
  31. PL GRAN. [Concomitant]
     Indication: UPPER RESPIRATORY TRACT INFLAMMATION
     Dosage: UNK g, UNK
     Route: 048
     Dates: start: 20090730, end: 20090806
  32. PL GRAN. [Concomitant]
     Dosage: 4 g, Unknown/D
     Route: 048
     Dates: start: 20110228, end: 20110304
  33. RESPLEN [Concomitant]
     Indication: UPPER RESPIRATORY TRACT INFLAMMATION
     Dosage: 60 mg, Unknown/D
     Route: 048
     Dates: start: 20090730, end: 20090806
  34. MUCODYNE [Concomitant]
     Indication: UPPER RESPIRATORY TRACT INFLAMMATION
     Dosage: 750 mg, Unknown/D
     Route: 048
     Dates: start: 20090730, end: 20090806
  35. VOLTAREN [Concomitant]
     Indication: ARTHRALGIA
     Dosage: 25 mg, Unknown/D
     Route: 048
     Dates: start: 20090820, end: 20100602
  36. LOXONIN [Concomitant]
     Indication: ARTHRALGIA
     Dosage: 180 mg, Unknown/D
     Route: 048
     Dates: start: 20090924, end: 20091008
  37. LOXONIN [Concomitant]
     Dosage: 180 mg, Unknown/D
     Route: 048
     Dates: start: 20100603, end: 20110209
  38. LOXONIN [Concomitant]
     Dosage: 180 mg, Unknown/D
     Route: 048
     Dates: start: 20110825, end: 20110921
  39. LOXONIN [Concomitant]
     Dosage: 180 mg, Unknown/D
     Route: 048
     Dates: start: 20111020, end: 20111129
  40. CELECOX [Concomitant]
     Indication: ARTHRALGIA
     Dosage: 200 mg, Unknown/D
     Route: 048
     Dates: start: 20091008, end: 20100602
  41. CELECOX [Concomitant]
     Dosage: 400 mg, Unknown/D
     Route: 048
     Dates: start: 20100603
  42. ENDOXAN /00021101/ [Concomitant]
     Indication: LUPUS NEPHRITIS
     Dosage: UNK mg, Monthly
     Route: 065
     Dates: start: 20101221, end: 20110510
  43. FLOMOX [Concomitant]
     Indication: UPPER RESPIRATORY TRACT INFLAMMATION
     Dosage: 300 mg, Unknown/D
     Route: 048
     Dates: start: 20100726, end: 20100801
  44. FLOMOX [Concomitant]
     Dosage: 300 mg, Unknown/D
     Route: 048
     Dates: start: 20100913, end: 20100919
  45. FLOMOX [Concomitant]
     Dosage: 300 mg, Unknown/D
     Route: 048
     Dates: start: 20101112, end: 20101119
  46. CHLOPHEDRIN S                      /00560301/ [Concomitant]
     Dosage: 1.5 g, Unknown/D
     Route: 048
     Dates: start: 20100913, end: 20100919
  47. CHLOPHEDRIN S                      /00560301/ [Concomitant]
     Dosage: 1.5 g, Unknown/D
     Route: 048
     Dates: start: 20101112, end: 20110209
  48. CHLOPHEDRIN S                      /00560301/ [Concomitant]
     Dosage: 1.5 g, Unknown/D
     Route: 048
     Dates: start: 20110310, end: 20110506
  49. CHLOPHEDRIN S                      /00560301/ [Concomitant]
     Dosage: 1.5 g, Unknown/D
     Route: 048
     Dates: start: 20110629, end: 20111123
  50. ALESION [Concomitant]
     Dosage: 20 mg, Unknown/D
     Route: 048
     Dates: start: 20101007
  51. BAKTAR [Concomitant]
     Indication: PROPHYLAXIS
     Dosage: 1 g, qod
     Route: 048
     Dates: start: 20110113, end: 20110126
  52. BAKTAR [Concomitant]
     Dosage: 1 g, Unknown/D
     Route: 048
     Dates: start: 20110127
  53. DASEN [Concomitant]
     Dosage: 30 mg, Unknown/D
     Route: 048
     Dates: start: 20101112, end: 20101119
  54. ALFAROL [Concomitant]
     Indication: PROPHYLAXIS
     Dosage: 0.5 ug, Unknown/D
     Route: 048
     Dates: start: 20110310
  55. PLETAAL [Concomitant]
     Indication: PULMONARY EMBOLISM
     Dosage: 200 mg, Unknown/D
     Route: 048
     Dates: start: 20111117, end: 20111123
  56. FERRUM                             /00023505/ [Concomitant]
     Dosage: 100 mg, Unknown/D
     Route: 048
     Dates: start: 20111130
  57. GASTER [Concomitant]
     Indication: PROPHYLAXIS
     Dosage: 40 mg, Unknown/D
     Route: 048
  58. WARFARIN [Concomitant]
     Indication: PULMONARY EMBOLISM
     Dosage: 4 mg, Unknown/D
     Route: 048
     Dates: start: 20111118, end: 20111123
  59. WARFARIN [Concomitant]
     Dosage: 5 mg, Unknown/D
     Route: 048
     Dates: start: 20111124, end: 20111127
  60. WARFARIN [Concomitant]
     Dosage: 7 mg, Unknown/D
     Route: 048
     Dates: start: 20111128, end: 20111204
  61. WARFARIN [Concomitant]
     Dosage: 6 mg, Unknown/D
     Route: 048
     Dates: start: 20111205, end: 20120201
  62. WARFARIN [Concomitant]
     Dosage: 7 mg, Unknown/D
     Route: 048
     Dates: start: 20120202
  63. HERBESSER R [Concomitant]
     Indication: PULMONARY EMBOLISM
     Dosage: 200 mg, Unknown/D
     Route: 048
     Dates: start: 20111118

REACTIONS (5)
  - Pulmonary embolism [Recovered/Resolved]
  - Upper respiratory tract inflammation [Recovered/Resolved]
  - Migraine [Recovered/Resolved]
  - Arthralgia [Recovered/Resolved]
  - Diabetes mellitus [Not Recovered/Not Resolved]
